FAERS Safety Report 6717989-8 (Version None)
Quarter: 2010Q2

REPORT INFORMATION
  Report Type: 
  Country: None (occurrence: None)
  Receive Date: 20100510
  Receipt Date: 20100506
  Transmission Date: 20101027
  Serious: Yes (Death, Other)
  Sender: FDA-Public Use
  Company Number: PHHY2010TW29336

PATIENT
  Age: 45 Year
  Sex: Male

DRUGS (2)
  1. CYCLOSPORINE [Suspect]
     Indication: HEART TRANSPLANT
     Dosage: UNK
     Dates: start: 20010407
  2. THALIDOMIDE [Concomitant]

REACTIONS (15)
  - AMYLOIDOSIS [None]
  - BENCE JONES PROTEIN URINE PRESENT [None]
  - BLOOD PRODUCT TRANSFUSION DEPENDENT [None]
  - BLOOD STEM CELL TRANSPLANT FAILURE [None]
  - CARDIAC AMYLOIDOSIS [None]
  - CUTANEOUS AMYLOIDOSIS [None]
  - CYTOMEGALOVIRUS INFECTION [None]
  - GAMMOPATHY [None]
  - HYPOAESTHESIA [None]
  - KLEBSIELLA SEPSIS [None]
  - MULTIPLE MYELOMA [None]
  - PERIPHERAL SENSORY NEUROPATHY [None]
  - PLASMA CELLS INCREASED [None]
  - PNEUMONIA KLEBSIELLA [None]
  - STEM CELL TRANSPLANT [None]
